FAERS Safety Report 6189105-5 (Version None)
Quarter: 2009Q2

REPORT INFORMATION
  Report Type: 
  Country: None (occurrence: None)
  Receive Date: 20090513
  Receipt Date: 20090508
  Transmission Date: 20091009
  Serious: Yes (Other)
  Sender: FDA-Public Use
  Company Number: ID-JNJFOC-20090502130

PATIENT
  Sex: Female
  Weight: 68 kg

DRUGS (2)
  1. OLANZAPINE [Suspect]
     Indication: BIPOLAR I DISORDER
     Route: 030
  2. PLACEBO [Suspect]
     Indication: BIPOLAR I DISORDER
     Route: 030

REACTIONS (3)
  - ANAEMIA [None]
  - ENDOMETRIOSIS [None]
  - HAEMORRHAGE [None]
